FAERS Safety Report 6160318-1 (Version None)
Quarter: 2009Q2

REPORT INFORMATION
  Report Type: 
  Country: None (occurrence: None)
  Receive Date: 20090416
  Receipt Date: 20090402
  Transmission Date: 20091009
  Serious: Yes (Hospitalization)
  Sender: FDA-Public Use
  Company Number: 20090109

PATIENT
  Age: 71 Year
  Sex: Female
  Weight: 78.9259 kg

DRUGS (1)
  1. VENOFER [Suspect]
     Dosage: 200MG IN 100ML FUILD/60 MIN INTRAVENOUS
     Route: 042
     Dates: start: 20090402, end: 20090402

REACTIONS (2)
  - ECCHYMOSIS [None]
  - EXTRAVASATION [None]
